FAERS Safety Report 4650459-X (Version None)
Quarter: 2005Q2

REPORT INFORMATION
  Report Type: 
  Country: None (occurrence: None)
  Receive Date: 20050429
  Receipt Date: 20050421
  Transmission Date: 20051028
  Serious: Yes (Disabling)
  Sender: FDA-Public Use
  Company Number: 2005S1000133

PATIENT
  Age: 69 Year
  Sex: Male

DRUGS (2)
  1. ACITRETIN (ACITRETIN) [Suspect]
     Indication: SKIN CANCER
     Dosage: 10 MG; QD; PO
     Route: 048
     Dates: start: 20030715, end: 20030819
  2. ACITRETIN (ACITRETIN) [Suspect]
     Indication: SKIN CANCER
     Dosage: 20 MG; QD; PO
     Route: 048
     Dates: start: 20030820, end: 20031001

REACTIONS (2)
  - AGEUSIA [None]
  - PAROSMIA [None]
